FAERS Safety Report 21387189 (Version 1)
Quarter: 2022Q3

REPORT INFORMATION
  Report Type: Spontaneous
  Country: US (occurrence: None)
  Receive Date: 20220927
  Receipt Date: 20220927
  Transmission Date: 20221027
  Serious: Yes (Other)
  Sender: FDA-Public Use
  Company Number: None

PATIENT
  Age: 62 Year
  Sex: Female
  Weight: 64.35 kg

DRUGS (13)
  1. VORICONAZOLE [Suspect]
     Active Substance: VORICONAZOLE
     Indication: Bronchopulmonary aspergillosis
     Dosage: OTHER QUANTITY : 1 TABLET(S);?FREQUENCY : EVERY 12 HOURS;?
     Route: 048
     Dates: start: 20220801, end: 20220923
  2. CLONAZEPAM [Concomitant]
     Active Substance: CLONAZEPAM
  3. PRAMIPEXOLE [Concomitant]
     Active Substance: PRAMIPEXOLE
  4. amitrypiline [Concomitant]
  5. GABAPENTIN [Concomitant]
     Active Substance: GABAPENTIN
  6. ROSUVASTATIN [Concomitant]
     Active Substance: ROSUVASTATIN
  7. CUTAQUIG [Concomitant]
     Active Substance: HUMAN IMMUNOGLOBULIN G
  8. EMGALITY [Concomitant]
     Active Substance: GALCANEZUMAB-GNLM
  9. TRELEGY ELLIPTA [Concomitant]
     Active Substance: FLUTICASONE FUROATE\UMECLIDINIUM BROMIDE\VILANTEROL TRIFENATATE
  10. ALBUTEROL [Concomitant]
     Active Substance: ALBUTEROL
  11. NP THYROID [Concomitant]
     Active Substance: LEVOTHYROXINE\LIOTHYRONINE
  12. BUPROPION [Concomitant]
     Active Substance: BUPROPION
  13. XYZAL [Concomitant]
     Active Substance: LEVOCETIRIZINE DIHYDROCHLORIDE

REACTIONS (9)
  - Skin discolouration [None]
  - Skin exfoliation [None]
  - Memory impairment [None]
  - Paraesthesia [None]
  - Paraesthesia [None]
  - Bronchopulmonary aspergillosis allergic [None]
  - Hypoaesthesia [None]
  - Balance disorder [None]
  - Hypokinesia [None]

NARRATIVE: CASE EVENT DATE: 20220914
